FAERS Safety Report 8672326 (Version 3)
Quarter: 2013Q4

REPORT INFORMATION
  Report Type: Spontaneous
  Country: EG (occurrence: EG)
  Receive Date: 20120719
  Receipt Date: 20131107
  Transmission Date: 20140711
  Serious: Yes (Other)
  Sender: FDA-Public Use
  Company Number: EG-009507513-1207EGY003897

PATIENT
  Sex: Male

DRUGS (2)
  1. PEG-INTRON [Suspect]
     Indication: HEPATITIS C
     Dosage: 120 MICROGRAM, QW
     Route: 058
     Dates: start: 20120501, end: 20120707
  2. REBETOL [Suspect]
     Indication: HEPATITIS C
     Dosage: 1.2 G, UNK
     Route: 048
     Dates: start: 20120501, end: 20120707

REACTIONS (4)
  - Visual field defect [Recovering/Resolving]
  - Optic nerve disorder [Recovering/Resolving]
  - Visual acuity reduced [Recovering/Resolving]
  - Papilloedema [Recovering/Resolving]
